FAERS Safety Report 4826488-X (Version None)
Quarter: 2005Q4

REPORT INFORMATION
  Report Type: 
  Country: None (occurrence: None)
  Receive Date: 20051014
  Receipt Date: 20050722
  Transmission Date: 20060501
  Serious: Yes (Other)
  Sender: FDA-Public Use
  Company Number: 2005051578

PATIENT
  Sex: Female

DRUGS (1)
  1. MACUGEN [Suspect]
     Indication: MACULAR DEGENERATION
     Dosage: (0.1 CC, 1 IN 6 WK) INTRAVITREOUS
     Dates: start: 20050322

REACTIONS (1)
  - INJECTION SITE EXTRAVASATION [None]
